FAERS Safety Report 9342688 (Version 1)
Quarter: 2013Q2

REPORT INFORMATION
  Report Type: Spontaneous
  Country: JP (occurrence: JP)
  Receive Date: 20130611
  Receipt Date: 20130611
  Transmission Date: 20140414
  Serious: Yes (Death)
  Sender: FDA-Public Use
  Company Number: JP-ASTRAZENECA-2013SE40798

PATIENT
  Sex: 0

DRUGS (3)
  1. MARCAIN [Suspect]
     Indication: SPINAL ANAESTHESIA
     Route: 029
  2. GENERAL ANESTHETICS [Concomitant]
     Indication: GENERAL ANAESTHESIA
     Route: 055
  3. OPIOID [Concomitant]
     Indication: GENERAL ANAESTHESIA

REACTIONS (2)
  - Cardiac failure [Fatal]
  - Renal failure [Fatal]
